FAERS Safety Report 6129634-3 (Version None)
Quarter: 2009Q1

REPORT INFORMATION
  Report Type: 
  Country: None (occurrence: None)
  Receive Date: 20090323
  Receipt Date: 20090323
  Transmission Date: 20090719
  Serious: No
  Sender: FDA-Public Use
  Company Number: None

PATIENT
  Age: 72 Year
  Sex: Female
  Weight: 61.2356 kg

DRUGS (2)
  1. AMLODIPINE BESYLATE AND BENAZEPRIL HCL [Suspect]
     Indication: BLOOD PRESSURE
     Dosage: ONE PILL ONCE DAILY PO
     Route: 048
     Dates: start: 20081108, end: 20090320
  2. LOTREL [Suspect]

REACTIONS (2)
  - BLOOD PRESSURE INADEQUATELY CONTROLLED [None]
  - THERAPEUTIC RESPONSE UNEXPECTED WITH DRUG SUBSTITUTION [None]
